FAERS Safety Report 7452250-8 (Version None)
Quarter: 2011Q2

REPORT INFORMATION
  Report Type: 
  Country: None (occurrence: None)
  Receive Date: 20110502
  Receipt Date: 20110428
  Transmission Date: 20111010
  Serious: Yes (Death, Other)
  Sender: FDA-Public Use
  Company Number: FR-CEPHALON-2011000893

PATIENT
  Age: 57 Year
  Sex: Female

DRUGS (4)
  1. FENTANYL CITRATE [Suspect]
     Indication: CANCER PAIN
     Route: 002
  2. FENTANYL CITRATE [Suspect]
     Route: 002
  3. DURAGESIC [Concomitant]
     Indication: CANCER PAIN
     Route: 062
  4. DURAGESIC [Concomitant]
     Route: 062

REACTIONS (3)
  - DRUG PRESCRIBING ERROR [None]
  - PELVIC NEOPLASM [None]
  - MOUTH ULCERATION [None]
